FAERS Safety Report 8043649-X (Version None)
Quarter: 2012Q1

REPORT INFORMATION
  Report Type: 
  Country: None (occurrence: None)
  Receive Date: 20120112
  Receipt Date: 20120103
  Transmission Date: 20120608
  Serious: Yes (Hospitalization)
  Sender: FDA-Public Use
  Company Number: FR-ASTRAZENECA-2012SE00499

PATIENT
  Age: 35 Year
  Sex: Male

DRUGS (3)
  1. NEXIUM [Suspect]
     Route: 048
     Dates: start: 20110725, end: 20110919
  2. AMITRIPTYLINE HCL [Suspect]
     Dates: start: 20110824, end: 20110919
  3. LOVENOX [Suspect]
     Dates: start: 20110913, end: 20110919

REACTIONS (1)
  - DRUG RASH WITH EOSINOPHILIA AND SYSTEMIC SYMPTOMS [None]
